FAERS Safety Report 13345413 (Version 1)
Quarter: 2017Q1

REPORT INFORMATION
  Report Type: Spontaneous
  Country: None (occurrence: US)
  Receive Date: 20170316
  Receipt Date: 20170316
  Transmission Date: 20170428
  Serious: No
  Sender: FDA-Public Use
  Company Number: None

PATIENT
  Age: 83 Year
  Sex: Female

DRUGS (1)
  1. IBRANCE [Suspect]
     Active Substance: PALBOCICLIB
     Indication: BREAST CANCER
     Dosage: 100MG DAILY FOR 21 DAYS EVERY 28 DAY CYCLE ORAL
     Route: 048
     Dates: start: 20160705, end: 20170313

REACTIONS (1)
  - Disease progression [None]

NARRATIVE: CASE EVENT DATE: 20170313
